FAERS Safety Report 5773437-6 (Version None)
Quarter: 2008Q2

REPORT INFORMATION
  Report Type: 
  Country: None (occurrence: None)
  Receive Date: 20080616
  Receipt Date: 20080327
  Transmission Date: 20081010
  Serious: Yes (Hospitalization)
  Sender: FDA-Public Use
  Company Number: FR-AVENTIS-200812158FR

PATIENT
  Age: 70 Year
  Sex: Female

DRUGS (13)
  1. LASILIX                            /00032601/ [Suspect]
     Dates: start: 20080126, end: 20080204
  2. LASILIX                            /00032601/ [Suspect]
     Indication: CARDIAC FAILURE
     Dates: start: 20080126, end: 20080204
  3. ROCEPHIN [Concomitant]
     Indication: DRUG USE FOR UNKNOWN INDICATION
  4. PRIMPERAN                          /00041901/ [Concomitant]
     Indication: DRUG USE FOR UNKNOWN INDICATION
  5. DEPAMIDE [Concomitant]
     Indication: DRUG USE FOR UNKNOWN INDICATION
     Route: 048
  6. EFFEXOR [Concomitant]
     Indication: DRUG USE FOR UNKNOWN INDICATION
     Route: 048
  7. XANAX [Concomitant]
     Indication: DRUG USE FOR UNKNOWN INDICATION
     Route: 048
  8. AMLOR [Concomitant]
     Indication: DRUG USE FOR UNKNOWN INDICATION
     Route: 048
  9. NEXIUM [Concomitant]
     Indication: DRUG USE FOR UNKNOWN INDICATION
     Route: 048
  10. TRAMADOL HCL [Concomitant]
     Indication: DRUG USE FOR UNKNOWN INDICATION
     Route: 048
  11. FLAGYL [Concomitant]
     Indication: DRUG USE FOR UNKNOWN INDICATION
  12. PLAVIX [Concomitant]
     Indication: DRUG USE FOR UNKNOWN INDICATION
     Route: 048
  13. PREVISCAN                          /00789001/ [Concomitant]
     Indication: DRUG USE FOR UNKNOWN INDICATION
     Route: 048

REACTIONS (2)
  - HYPOKALAEMIA [None]
  - TORSADE DE POINTES [None]
